FAERS Safety Report 5741004-6 (Version None)
Quarter: 2008Q2

REPORT INFORMATION
  Report Type: 
  Country: None (occurrence: None)
  Receive Date: 20080516
  Receipt Date: 20080507
  Transmission Date: 20081010
  Serious: Yes (Hospitalization, Other)
  Sender: FDA-Public Use
  Company Number: UY-PFIZER INC-2008036986

PATIENT
  Sex: Male
  Weight: 82 kg

DRUGS (2)
  1. CHANTIX [Suspect]
     Indication: SMOKING CESSATION THERAPY
     Route: 048
     Dates: start: 20080308, end: 20080401
  2. CHANTIX [Suspect]
     Indication: TOBACCO USER

REACTIONS (1)
  - ROAD TRAFFIC ACCIDENT [None]
